FAERS Safety Report 6898748-2 (Version None)
Quarter: 2010Q3

REPORT INFORMATION
  Report Type: 
  Country: None (occurrence: None)
  Receive Date: 20100802
  Receipt Date: 20071130
  Transmission Date: 20110219
  Serious: Yes (Other)
  Sender: FDA-Public Use
  Company Number: US-PFIZER INC-2007101557

PATIENT
  Sex: Female
  Weight: 68 kg

DRUGS (4)
  1. LYRICA [Suspect]
     Indication: TRIGEMINAL NEURALGIA
     Route: 048
     Dates: start: 20071001
  2. DILAUDID [Suspect]
     Indication: PAIN
     Dates: start: 20071001
  3. LEXAPRO [Concomitant]
  4. KLONOPIN [Concomitant]

REACTIONS (2)
  - PAIN [None]
  - WEIGHT INCREASED [None]
